FAERS Safety Report 5243431-2 (Version None)
Quarter: 2007Q1

REPORT INFORMATION
  Report Type: 
  Country: None (occurrence: None)
  Receive Date: 20070209
  Receipt Date: 20070131
  Transmission Date: 20070707
  Serious: No
  Sender: FDA-Public Use
  Company Number: 2007-153843-NL

PATIENT
  Age: 29 Year
  Sex: Female

DRUGS (1)
  1. MIRTAZAPINE [Suspect]
     Indication: DEPRESSION
     Dosage: 45 MG
     Route: 048
     Dates: start: 20061001

REACTIONS (14)
  - ABNORMAL DREAMS [None]
  - CHEST PAIN [None]
  - CONVULSION [None]
  - EAR DISORDER [None]
  - EYE DISORDER [None]
  - FLANK PAIN [None]
  - HAEMORRHAGE [None]
  - HEADACHE [None]
  - HYPERKINESIA [None]
  - MUSCLE DISORDER [None]
  - MYDRIASIS [None]
  - OESOPHAGEAL PAIN [None]
  - SENSORY LOSS [None]
  - SINUS DISORDER [None]
